FAERS Safety Report 19968599 (Version 2)
Quarter: 2021Q4

REPORT INFORMATION
  Report Type: Report from Study
  Country: US (occurrence: US)
  Receive Date: 20211019
  Receipt Date: 20211026
  Transmission Date: 20220303
  Serious: Yes (Other)
  Sender: FDA-Public Use
  Company Number: US-ROCHE-2931171

PATIENT
  Age: 42 Year
  Sex: Male
  Weight: 89 kg

DRUGS (8)
  1. ATEZOLIZUMAB [Suspect]
     Active Substance: ATEZOLIZUMAB
     Indication: Colon cancer stage III
     Dosage: ON DAY 1, START DATE OF COURSE ASSOCIATED WITH EXPEDITED REPORT 19/APR/2021
     Route: 042
     Dates: start: 20210419, end: 20210419
  2. ATEZOLIZUMAB [Suspect]
     Active Substance: ATEZOLIZUMAB
     Route: 042
     Dates: start: 20210322, end: 20210322
  3. LEUCOVORIN CALCIUM [Suspect]
     Active Substance: LEUCOVORIN CALCIUM
     Indication: Colon cancer stage III
     Dosage: OVER 2 HOURS ON DAY 1
     Route: 042
     Dates: start: 20210419, end: 20210419
  4. LEUCOVORIN CALCIUM [Suspect]
     Active Substance: LEUCOVORIN CALCIUM
     Dosage: OVER 2 HOURS ON DAY 1.?LAST ADMINISTRATION DATE 22/MAR/2021
     Route: 042
     Dates: start: 20210322, end: 20210322
  5. FLUOROURACIL [Suspect]
     Active Substance: FLUOROURACIL
     Indication: Colon cancer stage III
     Dosage: LAST INJECTION DATE; 21/APR/2021?TOTAL DOSE 6020 MG
     Route: 042
     Dates: start: 20210419, end: 20210419
  6. FLUOROURACIL [Suspect]
     Active Substance: FLUOROURACIL
     Dosage: LAST INJECTION DATE; 24/MAR/2021?TOTAL DOSE 6020 MG
     Route: 042
     Dates: start: 20210322, end: 20210322
  7. OXALIPLATIN [Suspect]
     Active Substance: OXALIPLATIN
     Indication: Colon cancer stage III
     Route: 042
     Dates: start: 20210419, end: 20210419
  8. OXALIPLATIN [Suspect]
     Active Substance: OXALIPLATIN
     Dosage: LAST ADMINISTRATION DATE 22/MAR/2021
     Route: 042
     Dates: start: 20210322, end: 20210322

REACTIONS (2)
  - Diarrhoea [Recovering/Resolving]
  - Diarrhoea [Recovering/Resolving]

NARRATIVE: CASE EVENT DATE: 20210328
